FAERS Safety Report 17609021 (Version 10)
Quarter: 2020Q3

REPORT INFORMATION
  Report Type: Report from Study
  Country: US (occurrence: US)
  Receive Date: 20200401
  Receipt Date: 20200922
  Transmission Date: 20201102
  Serious: No
  Sender: FDA-Public Use
  Company Number: NVSC2020US088660

PATIENT
  Sex: Female

DRUGS (1)
  1. PIQRAY [Suspect]
     Active Substance: ALPELISIB
     Indication: PRODUCT USED FOR UNKNOWN INDICATION
     Dosage: UNK
     Route: 048

REACTIONS (17)
  - Mouth ulceration [Unknown]
  - Asthenia [Unknown]
  - Tumour marker increased [Unknown]
  - Solar lentigo [Unknown]
  - Lymphoedema [Unknown]
  - Dehydration [Unknown]
  - Swelling face [Unknown]
  - Fatigue [Unknown]
  - Stomatitis [Unknown]
  - Dyspnoea [Unknown]
  - Nausea [Recovered/Resolved]
  - Tongue ulceration [Unknown]
  - Alopecia [Unknown]
  - Benign neoplasm [Unknown]
  - Peripheral swelling [Unknown]
  - Pyrexia [Unknown]
  - Clumsiness [Unknown]
